FAERS Safety Report 4529315-3 (Version None)
Quarter: 2004Q4

REPORT INFORMATION
  Report Type: 
  Country: None (occurrence: None)
  Receive Date: 20041214
  Receipt Date: 20041025
  Transmission Date: 20050328
  Serious: Yes (Other)
  Sender: FDA-Public Use
  Company Number: 2004092672

PATIENT
  Age: 41 Year
  Sex: Female

DRUGS (2)
  1. ZELDOX (CAPSULES) (ZIPRASIDONE) [Suspect]
     Indication: SCHIZOAFFECTIVE DISORDER
     Dosage: 40 MG (40 MG, 1 IN 1 D), ORAL
     Route: 048
     Dates: start: 20030113, end: 20030127
  2. CITALOPRAM HYDROBROMIDE [Suspect]
     Indication: SCHIZOAFFECTIVE DISORDER
     Dosage: 20 MG (20 MG, 1 IN 1 D), ORAL
     Route: 048
     Dates: start: 20021227, end: 20030127

REACTIONS (4)
  - DRUG INTERACTION [None]
  - DYSKINESIA [None]
  - MUSCLE SPASMS [None]
  - NASOPHARYNGEAL DISORDER [None]
